FAERS Safety Report 18332542 (Version 1)
Quarter: 2020Q4

REPORT INFORMATION
  Report Type: Report from Study
  Country: RO (occurrence: RO)
  Receive Date: 20201001
  Receipt Date: 20201001
  Transmission Date: 20210113
  Serious: Yes (Death, Hospitalization, Other)
  Sender: FDA-Public Use
  Company Number: RO-GILEAD-2020-0456185

PATIENT
  Age: 71 Year
  Sex: Female

DRUGS (5)
  1. LEDIPASVIR/SOFOSBUVIR [Suspect]
     Active Substance: LEDIPASVIR\SOFOSBUVIR
     Indication: CHRONIC HEPATITIS C
     Dosage: 1 DOSAGE FORM, QD
     Route: 048
     Dates: start: 20200228, end: 20200521
  2. COENZYME Q10 [Concomitant]
     Active Substance: DIETARY SUPPLEMENT\UBIDECARENONE
     Dosage: UNK
  3. NITROPECTOR [Concomitant]
     Dosage: UNK
  4. CENTRUM PLUS [Concomitant]
     Active Substance: VITAMINS
  5. IRESSA [Concomitant]
     Active Substance: GEFITINIB
     Dosage: UNK

REACTIONS (10)
  - Decreased appetite [Not Recovered/Not Resolved]
  - Movement disorder [Not Recovered/Not Resolved]
  - Tremor [Not Recovered/Not Resolved]
  - Headache [Not Recovered/Not Resolved]
  - Balance disorder [Not Recovered/Not Resolved]
  - Dizziness [Not Recovered/Not Resolved]
  - Dyspnoea [Recovered/Resolved]
  - Death [Fatal]
  - Vomiting [Not Recovered/Not Resolved]
  - Pleurisy [Recovering/Resolving]

NARRATIVE: CASE EVENT DATE: 202003
